FAERS Safety Report 7772667-1 (Version None)
Quarter: 2011Q3

REPORT INFORMATION
  Report Type: 
  Country: None (occurrence: None)
  Receive Date: 20110922
  Receipt Date: 20110321
  Transmission Date: 20111222
  Serious: No
  Sender: FDA-Public Use
  Company Number: US-ASTRAZENECA-2011SE15795

PATIENT
  Age: 21 Year
  Sex: Male
  Weight: 104.3 kg

DRUGS (3)
  1. LORTAB [Concomitant]
     Indication: PAIN
  2. SEROQUEL [Suspect]
     Indication: INSOMNIA
     Route: 048
  3. XANEX [Concomitant]
     Indication: ANXIETY

REACTIONS (1)
  - GUN SHOT WOUND [None]
